FAERS Safety Report 5551667-6 (Version None)
Quarter: 2007Q4

REPORT INFORMATION
  Report Type: 
  Country: None (occurrence: None)
  Receive Date: 20071212
  Receipt Date: 20071203
  Transmission Date: 20080405
  Serious: Yes (Hospitalization)
  Sender: FDA-Public Use
  Company Number: HU-PFIZER INC-2007088709

PATIENT
  Sex: Male

DRUGS (8)
  1. GENOTROPIN [Suspect]
     Indication: HYPOPITUITARISM
     Route: 058
     Dates: start: 20061012, end: 20071010
  2. CARBAMAZEPINE [Concomitant]
     Route: 048
  3. L-THYROXIN [Concomitant]
     Route: 048
  4. HYDROCORTISON [Concomitant]
     Route: 048
  5. DESMOPRESSIN ACETATE [Concomitant]
     Route: 048
  6. TESTOSTERONE [Concomitant]
     Route: 048
  7. ALLOPURINOL [Concomitant]
     Route: 048
  8. FAMOTIDINE [Concomitant]
     Route: 048

REACTIONS (2)
  - CRANIOPHARYNGIOMA [None]
  - NEOPLASM RECURRENCE [None]
